FAERS Safety Report 22005369 (Version 1)
Quarter: 2023Q1

REPORT INFORMATION
  Report Type: Report from Study
  Country: CO (occurrence: CO)
  Receive Date: 20230217
  Receipt Date: 20230217
  Transmission Date: 20230417
  Serious: Yes (Other)
  Sender: FDA-Public Use
  Company Number: CO-TAKEDA-2023TUS017481

PATIENT
  Sex: Male
  Weight: 75 kg

DRUGS (1)
  1. VEDOLIZUMAB [Suspect]
     Active Substance: VEDOLIZUMAB
     Indication: Colitis ulcerative
     Dosage: 300 MILLIGRAM
     Route: 042
     Dates: start: 20220812

REACTIONS (5)
  - Rectal haemorrhage [Unknown]
  - Diarrhoea [Unknown]
  - Abdominal pain upper [Unknown]
  - Pain in extremity [Unknown]
  - Fatigue [Unknown]
